FAERS Safety Report 8525354-6 (Version None)
Quarter: 2012Q3

REPORT INFORMATION
  Report Type: 
  Country: None (occurrence: None)
  Receive Date: 20120720
  Receipt Date: 20120719
  Transmission Date: 20120928
  Serious: Yes (Death, Other)
  Sender: FDA-Public Use
  Company Number: PHEH2009US02563

PATIENT
  Sex: Female

DRUGS (10)
  1. WARFARIN SODIUM [Concomitant]
  2. PAMIDRONATE DISODIUM [Suspect]
     Indication: OSTEOPOROSIS
  3. COUMADIN [Concomitant]
  4. PAMIDRONATE DISODIUM [Suspect]
     Indication: SARCOIDOSIS
     Dosage: 90 MG, QMO
     Dates: start: 20000301, end: 20060501
  5. METRONIDAZOLE [Concomitant]
     Indication: OSTEOMYELITIS
  6. AREDIA [Suspect]
     Dosage: 90 MG, QMO
     Dates: start: 20000301, end: 20060501
  7. MIRTAZAPINE [Concomitant]
     Indication: DEPRESSION
     Dosage: 15 MG, ONCE/SINGLE BEDTIME
  8. FUROSEMIDE [Concomitant]
     Dosage: 80 MG, ONCE/SINGLE
  9. AVAPRO [Concomitant]
     Indication: HYPERTENSION
     Dosage: 150 MG, ONCE/SINGLE
  10. ADVAIR DISKUS 100/50 [Concomitant]
     Indication: DYSPNOEA

REACTIONS (65)
  - INFECTION [None]
  - OEDEMA PERIPHERAL [None]
  - ARTERIOSCLEROSIS [None]
  - SPINAL COMPRESSION FRACTURE [None]
  - CHRONIC OBSTRUCTIVE PULMONARY DISEASE [None]
  - ARTHRITIS [None]
  - PULMONARY OEDEMA [None]
  - RHEUMATIC FEVER [None]
  - RESPIRATORY FAILURE [None]
  - DIARRHOEA [None]
  - ABDOMINAL PAIN UPPER [None]
  - GASTROINTESTINAL HAEMORRHAGE [None]
  - SICK SINUS SYNDROME [None]
  - DIZZINESS [None]
  - HYPOKALAEMIA [None]
  - ORTHOSTATIC HYPOTENSION [None]
  - ENCEPHALOPATHY [None]
  - TRICUSPID VALVE INCOMPETENCE [None]
  - OSTEOPENIA [None]
  - HAEMATOMA [None]
  - DEMENTIA ALZHEIMER'S TYPE [None]
  - DECREASED APPETITE [None]
  - BONE MARROW GRANULOMA [None]
  - PSYCHOTIC DISORDER [None]
  - ANAEMIA [None]
  - OSTEONECROSIS OF JAW [None]
  - PHYSICAL DISABILITY [None]
  - EXPOSED BONE IN JAW [None]
  - ORTHOPNOEA [None]
  - AORTIC VALVE INCOMPETENCE [None]
  - RHEUMATIC HEART DISEASE [None]
  - SCIATICA [None]
  - SKIN PAPILLOMA [None]
  - OSTEOARTHRITIS [None]
  - PAIN [None]
  - HYPOAESTHESIA [None]
  - ASTHMA [None]
  - NAUSEA [None]
  - COUGH [None]
  - MONOCLONAL GAMMOPATHY [None]
  - BLEPHARITIS [None]
  - DEFORMITY [None]
  - NEUROPATHY PERIPHERAL [None]
  - KYPHOSIS [None]
  - DYSPNOEA [None]
  - PLEURAL EFFUSION [None]
  - GAIT DISTURBANCE [None]
  - INTERVERTEBRAL DISC DEGENERATION [None]
  - URINARY INCONTINENCE [None]
  - DEATH [None]
  - EMOTIONAL DISTRESS [None]
  - ANXIETY [None]
  - RIGHT ATRIAL DILATATION [None]
  - CATARACT [None]
  - HYPERTENSION [None]
  - SYNCOPE [None]
  - DEAFNESS [None]
  - INFLAMMATION [None]
  - URINARY TRACT INFECTION [None]
  - DYSPHAGIA [None]
  - OSTEOMYELITIS [None]
  - DEPRESSION [None]
  - MUSCULOSKELETAL CHEST PAIN [None]
  - CARDIAC FAILURE CONGESTIVE [None]
  - ATELECTASIS [None]
